FAERS Safety Report 6689721-8 (Version None)
Quarter: 2010Q2

REPORT INFORMATION
  Report Type: 
  Country: None (occurrence: None)
  Receive Date: 20100421
  Receipt Date: 20100413
  Transmission Date: 20101027
  Serious: Yes (Other)
  Sender: FDA-Public Use
  Company Number: CA-BAYER-201019448NA

PATIENT
  Age: 47 Year
  Sex: Female

DRUGS (1)
  1. YAZ [Suspect]
     Indication: DRUG USE FOR UNKNOWN INDICATION
     Route: 048
     Dates: start: 20100214, end: 20100225

REACTIONS (5)
  - BREAST CANCER STAGE III [None]
  - BREAST DISCOLOURATION [None]
  - ERYTHEMA [None]
  - INFLAMMATORY CARCINOMA OF THE BREAST [None]
  - METASTASES TO LYMPH NODES [None]
